FAERS Safety Report 8663057 (Version 4)
Quarter: 2012Q4

REPORT INFORMATION
  Report Type: 
  Country: FR (occurrence: FR)
  Receive Date: 20120713
  Receipt Date: 20120920
  Transmission Date: 20130627
  Serious: Yes (Other)
  Sender: FDA-Public Use
  Company Number: FR-AMGEN-FRASP2012042526

PATIENT

DRUGS (1)
  1. ARANESP [Suspect]
     Indication: DIALYSIS
     Dosage: 40 UNK, UNK

REACTIONS (2)
  - Anaemia [Recovered/Resolved]
  - Mycoplasma test positive [Unknown]
